FAERS Safety Report 15208707 (Version 2)
Quarter: 2018Q3

REPORT INFORMATION
  Report Type: Spontaneous
  Country: US (occurrence: US)
  Receive Date: 20180727
  Receipt Date: 20180821
  Transmission Date: 20181010
  Serious: No
  Sender: FDA-Public Use
  Company Number: US-BAUSCH-BL-2018-019257

PATIENT
  Sex: Male
  Weight: 80.81 kg

DRUGS (2)
  1. ALDARA [Suspect]
     Active Substance: IMIQUIMOD
     Indication: ACTINIC KERATOSIS
     Route: 065
     Dates: start: 2017
  2. ALDARA [Suspect]
     Active Substance: IMIQUIMOD
     Dosage: ONCE IN EVERY TWO THREE DAYS
     Route: 065
     Dates: end: 201806

REACTIONS (2)
  - Inappropriate schedule of drug administration [Unknown]
  - Post inflammatory pigmentation change [Not Recovered/Not Resolved]

NARRATIVE: CASE EVENT DATE: 2018
